FAERS Safety Report 12912603 (Version 1)
Quarter: 2016Q4

REPORT INFORMATION
  Report Type: Spontaneous
  Country: IL (occurrence: IL)
  Receive Date: 20161104
  Receipt Date: 20161104
  Transmission Date: 20170207
  Serious: Yes (Other)
  Sender: FDA-Public Use
  Company Number: IL-NOVOPROD-517001

PATIENT
  Sex: Female

DRUGS (2)
  1. TREGLUDEC [Suspect]
     Active Substance: INSULIN DEGLUDEC
     Indication: PRODUCT USED FOR UNKNOWN INDICATION
     Dosage: UNK
     Route: 065
  2. INSULIN [Concomitant]
     Active Substance: INSULIN NOS
     Route: 065

REACTIONS (2)
  - Metabolic acidosis [Unknown]
  - Drug dose omission [Unknown]
